FAERS Safety Report 25648300 (Version 1)
Quarter: 2025Q3

REPORT INFORMATION
  Report Type: Spontaneous
  Country: JP (occurrence: JP)
  Receive Date: 20250806
  Receipt Date: 20250806
  Transmission Date: 20251020
  Serious: Yes (Other)
  Sender: JAZZ
  Company Number: JP-JAZZ PHARMACEUTICALS-2025-JP-018929

PATIENT
  Age: 14 Year
  Sex: Female

DRUGS (2)
  1. DEFITELIO [Suspect]
     Active Substance: DEFIBROTIDE SODIUM
     Indication: Venoocclusive liver disease
  2. INOTUZUMAB OZOGAMICIN [Concomitant]
     Active Substance: INOTUZUMAB OZOGAMICIN
     Indication: Acute lymphocytic leukaemia

REACTIONS (9)
  - Acute lymphocytic leukaemia recurrent [Unknown]
  - Oesophageal varices haemorrhage [Unknown]
  - Shock haemorrhagic [Unknown]
  - Varices oesophageal [Unknown]
  - Varices oesophageal [Unknown]
  - Seizure [Unknown]
  - Tonic convulsion [Unknown]
  - Venoocclusive liver disease [Unknown]
  - Varices oesophageal [Unknown]
